FAERS Safety Report 6936693-4 (Version None)
Quarter: 2010Q3

REPORT INFORMATION
  Report Type: 
  Country: None (occurrence: None)
  Receive Date: 20100823
  Receipt Date: 20100813
  Transmission Date: 20110219
  Serious: Yes (Hospitalization)
  Sender: FDA-Public Use
  Company Number: US-AMGEN-KDC431284

PATIENT
  Age: 54 Year
  Sex: Male
  Weight: 85 kg

DRUGS (4)
  1. PANITUMUMAB [Suspect]
     Indication: OESOPHAGEAL CARCINOMA
     Dates: start: 20100510
  2. DOCETAXEL [Suspect]
     Route: 042
     Dates: start: 20100510
  3. CISPLATIN [Suspect]
     Route: 042
     Dates: start: 20100510
  4. RADIATION THERAPY [Suspect]

REACTIONS (2)
  - FEBRILE NEUTROPENIA [None]
  - HYPOKALAEMIA [None]
